FAERS Safety Report 6276211-X (Version None)
Quarter: 2009Q3

REPORT INFORMATION
  Report Type: 
  Country: None (occurrence: None)
  Receive Date: 20090722
  Receipt Date: 20090714
  Transmission Date: 20100115
  Serious: Yes (Death, Other)
  Sender: FDA-Public Use
  Company Number: GB-BAYER-200925637GPV

PATIENT
  Age: 57 Year
  Sex: Male

DRUGS (15)
  1. FLUDARABINE PHOSPHATE [Suspect]
     Indication: WALDENSTROM'S MACROGLOBULINAEMIA
     Dosage: 3 COURSES
     Route: 048
     Dates: start: 20030601
  2. FLUDARABINE PHOSPHATE [Suspect]
     Dosage: 1 COURSE
     Route: 048
     Dates: start: 20031101
  3. DEXAMETHASONE [Suspect]
     Indication: WALDENSTROM'S MACROGLOBULINAEMIA
     Dosage: ONCE A DAY ON ALTERNATE DAYS
     Dates: start: 20040201
  4. CHLORAMBUCIL [Suspect]
     Indication: WALDENSTROM'S MACROGLOBULINAEMIA
     Dosage: TOTAL DAILY DOSE: 10 MG
     Route: 065
     Dates: start: 20030401
  5. CHLORAMBUCIL [Suspect]
     Dosage: TOTAL DAILY DOSE: 10 MG
     Route: 065
  6. CYCLOPHOSPHAMIDE [Suspect]
     Indication: WALDENSTROM'S MACROGLOBULINAEMIA
     Dosage: TOTAL DAILY DOSE: 800 MG
     Route: 048
     Dates: start: 20031101
  7. THALIDOMIDE [Suspect]
     Indication: WALDENSTROM'S MACROGLOBULINAEMIA
     Dosage: TOTAL DAILY DOSE: 100 MG
     Route: 048
     Dates: start: 20040201
  8. RITUXIMAB [Suspect]
     Indication: WALDENSTROM'S MACROGLOBULINAEMIA
     Dosage: 4 DOSES
  9. ACYCLOVIR [Concomitant]
     Dosage: TOTAL DAILY DOSE: 800 MG
     Route: 048
     Dates: start: 20030601
  10. COTRIM [Concomitant]
     Route: 065
     Dates: start: 20030601
  11. RED CELL [Concomitant]
     Indication: BONE MARROW FAILURE
  12. IMMUNE GLOBULIN INTRAVENOUS (HUMAN) [Concomitant]
     Indication: HYPOGAMMAGLOBULINAEMIA
     Route: 042
  13. DESFERRIOXAMINE [Concomitant]
     Indication: SERUM FERRITIN INCREASED
     Route: 058
     Dates: start: 20040101
  14. METRONIDAZOLE [Concomitant]
     Indication: BACTERAEMIA
     Dosage: TOTAL DAILY DOSE: 1500 MG
     Route: 042
  15. PYRIMETHAMINE [Concomitant]
     Indication: TOXOPLASMOSIS
     Dosage: TOTAL DAILY DOSE: 100 MG
     Route: 048

REACTIONS (10)
  - BACTERIAL SEPSIS [None]
  - BONE MARROW FAILURE [None]
  - CEREBRAL HAEMATOMA [None]
  - CEREBRAL TOXOPLASMOSIS [None]
  - GANGRENE [None]
  - HYPOGAMMAGLOBULINAEMIA [None]
  - MOLLUSCUM CONTAGIOSUM [None]
  - PANCYTOPENIA [None]
  - PSEUDOMONAL SEPSIS [None]
  - STAPHYLOCOCCAL BACTERAEMIA [None]
